FAERS Safety Report 8437564-7 (Version None)
Quarter: 2012Q2

REPORT INFORMATION
  Report Type: 
  Country: None (occurrence: None)
  Receive Date: 20120614
  Receipt Date: 20120427
  Transmission Date: 20120825
  Serious: No
  Sender: FDA-Public Use
  Company Number: US-AMGEN-USASP2012027108

PATIENT
  Age: 75 Year
  Sex: Female

DRUGS (2)
  1. PROLIA [Suspect]
     Indication: OSTEOPOROSIS POSTMENOPAUSAL
     Dosage: 60 MG, Q6MO
     Dates: start: 20111201
  2. PREDNISONE TAB [Concomitant]
     Dosage: UNK

REACTIONS (7)
  - HYPERSENSITIVITY [None]
  - COUGH [None]
  - PRURITUS [None]
  - THROAT IRRITATION [None]
  - FATIGUE [None]
  - EYE PRURITUS [None]
  - INSOMNIA [None]
